FAERS Safety Report 7014723-1 (Version None)
Quarter: 2010Q3

REPORT INFORMATION
  Report Type: 
  Country: None (occurrence: None)
  Receive Date: 20100927
  Receipt Date: 20100916
  Transmission Date: 20110219
  Serious: Yes (Other)
  Sender: FDA-Public Use
  Company Number: PHHY2010JP61515

PATIENT
  Age: 29 Year
  Sex: Female

DRUGS (1)
  1. TEGRETOL [Suspect]
     Indication: EPILEPSY
     Dosage: 1600 MG DAILY
     Route: 048

REACTIONS (6)
  - ANTICONVULSANT DRUG LEVEL INCREASED [None]
  - DIZZINESS [None]
  - DRUG DISPENSING ERROR [None]
  - EPILEPSY [None]
  - FALL [None]
  - NAUSEA [None]
